FAERS Safety Report 5117851-0 (Version None)
Quarter: 2006Q3

REPORT INFORMATION
  Report Type: 
  Country: None (occurrence: None)
  Receive Date: 20060926
  Receipt Date: 20060913
  Transmission Date: 20061208
  Serious: Yes (Death, Hospitalization)
  Sender: FDA-Public Use
  Company Number: TAP2006Q01571

PATIENT
  Age: 77 Year
  Sex: Male

DRUGS (9)
  1. LUPRON DEPOT-4 [Suspect]
     Indication: PROSTATE CANCER
     Dosage: 30 MG, 1 IN 4 M, INTRAMUSCULAR
     Route: 030
     Dates: start: 20060726
  2. ALTACE [Concomitant]
  3. ASAPHEN (ACETYLSALICYLIC ACID) [Concomitant]
  4. CASODEX (BICALCUTAMIDE) [Concomitant]
  5. MORPHINE SULFATE [Concomitant]
  6. ZANTAC [Concomitant]
  7. RIVASA (ACETYLSALICYLIC ACID) [Concomitant]
  8. FERROUS SULFATE TAB [Concomitant]
  9. CYANOCOBALAMIN [Concomitant]

REACTIONS (3)
  - CONDITION AGGRAVATED [None]
  - PNEUMONIA [None]
  - PYREXIA [None]
